FAERS Safety Report 6449434-4 (Version None)
Quarter: 2009Q4

REPORT INFORMATION
  Report Type: 
  Country: None (occurrence: None)
  Receive Date: 20091120
  Receipt Date: 20091112
  Transmission Date: 20100525
  Serious: Yes (Hospitalization)
  Sender: FDA-Public Use
  Company Number: JP-ABBOTT-09P-087-0608542-00

PATIENT
  Sex: Female
  Weight: 52.4 kg

DRUGS (11)
  1. HUMIRA [Suspect]
     Indication: COLITIS ULCERATIVE
     Route: 058
     Dates: start: 20090707, end: 20090901
  2. HUMIRA [Suspect]
     Route: 058
     Dates: start: 20090915, end: 20091013
  3. PENTASA [Concomitant]
     Indication: COLITIS ULCERATIVE
     Route: 048
     Dates: start: 20091027
  4. PREDNISOLONE [Concomitant]
     Indication: COLITIS ULCERATIVE
     Route: 048
     Dates: start: 20080215
  5. CRAVIT [Concomitant]
     Indication: PYREXIA
     Dates: start: 20091027, end: 20091105
  6. FERROMIA [Concomitant]
     Indication: ANAEMIA
     Route: 048
     Dates: start: 20080822
  7. OMEPRAL [Concomitant]
     Indication: PROPHYLAXIS AGAINST GASTROINTESTINAL ULCER
     Route: 048
     Dates: start: 20091027
  8. MIYA BM [Concomitant]
     Indication: COLITIS ULCERATIVE
     Route: 048
     Dates: start: 20091027
  9. CALONAL [Concomitant]
     Indication: PYREXIA
     Route: 048
     Dates: start: 20091105
  10. BAKTAR [Concomitant]
     Indication: ANTIFUNGAL PROPHYLAXIS
     Dosage: 1 DOSAGE FORM/DAY
     Route: 048
     Dates: start: 20091105
  11. BAKTAR [Concomitant]
     Indication: IMMUNOSUPPRESSION

REACTIONS (1)
  - PYREXIA [None]
